FAERS Safety Report 8840039 (Version 2)
Quarter: 2012Q4

REPORT INFORMATION
  Report Type: 
  Country: US (occurrence: None)
  Receive Date: 20121011
  Receipt Date: 20121011
  Transmission Date: 20130627
  Serious: Yes (Other)
  Sender: FDA-Public Use
  Company Number: JPI-P-025410

PATIENT
  Age: 30 Year
  Sex: Male

DRUGS (6)
  1. XYREM (500 MILLIGRAM/MILLILITERS, SOLUTION)(SODIUM OXYBATE) [Suspect]
     Indication: CATAPLEXY
     Dosage: 4.5 gm (2.25 gm, 2 in 1 D), Oral
     Dates: start: 20120905, end: 201209
  2. ACETAMINOPHEN [Concomitant]
  3. SERTRALINE [Concomitant]
  4. NAPROXEN [Concomitant]
  5. CAFFEINE [Concomitant]
  6. OMEPRAZOLE [Concomitant]

REACTIONS (5)
  - Pulmonary thrombosis [None]
  - Suicidal ideation [None]
  - Respiratory distress [None]
  - Anxiety [None]
  - Somnambulism [None]
